FAERS Safety Report 9026131 (Version 1)
Quarter: 2012Q4

REPORT INFORMATION
  Report Type: Spontaneous
  Country: US (occurrence: None)
  Receive Date: 20121214
  Receipt Date: 20121214
  Transmission Date: 20130627
  Serious: Yes (Other)
  Sender: FDA-Public Use
  Company Number: None

PATIENT
  Sex: Female
  Weight: 111.59 kg

DRUGS (1)
  1. POTASSIUM [Suspect]
     Indication: HYPOKALEMIA
     Dosage: potassium QD oral
     Route: 048
     Dates: start: 201204

REACTIONS (3)
  - Nausea [None]
  - Abdominal pain upper [None]
  - Diarrhoea [None]
